FAERS Safety Report 8069899-4 (Version None)
Quarter: 2012Q1

REPORT INFORMATION
  Report Type: 
  Country: None (occurrence: None)
  Receive Date: 20120125
  Receipt Date: 20120113
  Transmission Date: 20120608
  Serious: Yes (Death)
  Sender: FDA-Public Use
  Company Number: US-ELI_LILLY_AND_COMPANY-US201110005324

PATIENT
  Sex: Male
  Weight: 49 kg

DRUGS (7)
  1. FORTEO [Suspect]
     Indication: OSTEOPOROSIS
     Dosage: 20 UG, QD
     Route: 058
     Dates: start: 20110602
  2. OXYCODONE HCL AND ACETAMINOPHEN [Concomitant]
  3. CALTRATE PLUS [Concomitant]
  4. FERROUS SULFATE TAB [Concomitant]
  5. WARFARIN SODIUM [Concomitant]
  6. LISINOPRIL HCT                     /01613901/ [Concomitant]
  7. CADUET [Concomitant]

REACTIONS (1)
  - CORONARY ARTERY INSUFFICIENCY [None]
